FAERS Safety Report 24072968 (Version 2)
Quarter: 2024Q3

REPORT INFORMATION
  Report Type: Spontaneous
  Country: NZ (occurrence: NZ)
  Receive Date: 20240710
  Receipt Date: 20240715
  Transmission Date: 20241016
  Serious: Yes (Other)
  Sender: MERZ
  Company Number: NZ-Merz Pharmaceuticals GmbH-24-02369

PATIENT
  Age: 43 Year
  Sex: Female

DRUGS (3)
  1. XEOMIN [Suspect]
     Active Substance: INCOBOTULINUMTOXINA
     Indication: Skin wrinkling
     Dosage: 1 TOTAL
     Route: 030
     Dates: start: 20240702, end: 20240702
  2. QUETIAPINE [Concomitant]
     Active Substance: QUETIAPINE
  3. LORAZEPAM [Concomitant]
     Active Substance: LORAZEPAM

REACTIONS (1)
  - Bell^s palsy [Not Recovered/Not Resolved]

NARRATIVE: CASE EVENT DATE: 20240701
